FAERS Safety Report 12859683 (Version 1)
Quarter: 2016Q4

REPORT INFORMATION
  Report Type: Spontaneous
  Country: IN (occurrence: IN)
  Receive Date: 20161018
  Receipt Date: 20161018
  Transmission Date: 20170207
  Serious: Yes (Other)
  Sender: FDA-Public Use
  Company Number: IN-BAUSCH-BL-2016-025060

PATIENT
  Age: 21 Year
  Sex: Female

DRUGS (1)
  1. VERTEPORFIN (NVO) [Suspect]
     Active Substance: VERTEPORFIN
     Indication: CHOROIDAL NEOVASCULARISATION
     Dosage: 6MG, 2 DOSE,
     Route: 065

REACTIONS (3)
  - Disease recurrence [Unknown]
  - Choroidal neovascularisation [Recovered/Resolved]
  - Subretinal fluid [Recovered/Resolved]
